FAERS Safety Report 10853669 (Version 1)
Quarter: 2015Q1

REPORT INFORMATION
  Report Type: Spontaneous
  Country: US (occurrence: US)
  Receive Date: 20150223
  Receipt Date: 20150223
  Transmission Date: 20150721
  Serious: No
  Sender: FDA-Public Use
  Company Number: US-PFIZER INC-2015065231

PATIENT
  Age: 28 Year
  Sex: Male
  Weight: 100 kg

DRUGS (8)
  1. SULFASALAZINE. [Suspect]
     Active Substance: SULFASALAZINE
     Indication: COLITIS ULCERATIVE
     Dosage: 500 MG, 2X/DAY
     Route: 048
     Dates: start: 201412
  2. VALERIAN ROOT [Concomitant]
     Active Substance: VALERIAN
  3. FISH OIL [Concomitant]
     Active Substance: FISH OIL
     Dosage: 2 DF, 1X/DAY
     Route: 048
  4. PREDNISONE. [Concomitant]
     Active Substance: PREDNISONE
     Indication: COLITIS ULCERATIVE
     Dosage: 20MG OR 40MG DAILY
     Route: 048
  5. MULTIVITAMINS [Concomitant]
     Active Substance: VITAMINS
  6. BUDESONIDE. [Concomitant]
     Active Substance: BUDESONIDE
     Indication: COLITIS ULCERATIVE
     Dosage: 9 MG, 1X/DAY
     Route: 048
  7. PROBIOTICS [Concomitant]
     Active Substance: PROBIOTICS NOS
     Dosage: UNK, DAILY
     Route: 048
  8. FIBER [Concomitant]
     Active Substance: PSYLLIUM HUSK

REACTIONS (2)
  - Ejaculation failure [Not Recovered/Not Resolved]
  - Infertility male [Unknown]

NARRATIVE: CASE EVENT DATE: 201412
